FAERS Safety Report 6199315-9 (Version None)
Quarter: 2009Q2

REPORT INFORMATION
  Report Type: 
  Country: None (occurrence: None)
  Receive Date: 20090520
  Receipt Date: 20090520
  Transmission Date: 20091009
  Serious: Yes (Life-Threatening, Hospitalization)
  Sender: FDA-Public Use
  Company Number: None

PATIENT
  Age: 68 Year
  Sex: Male
  Weight: 106 kg

DRUGS (1)
  1. ROPIVACAINE 0.5% APP PHARMACEUTICALS [Suspect]
     Indication: NERVE BLOCK
     Dosage: 40ML ONCE IT
     Route: 037
     Dates: start: 20090427, end: 20090427

REACTIONS (12)
  - ANOXIC ENCEPHALOPATHY [None]
  - BRADYCARDIA [None]
  - BRAIN INJURY [None]
  - COMA [None]
  - CONFUSIONAL STATE [None]
  - DEPRESSED LEVEL OF CONSCIOUSNESS [None]
  - DISORIENTATION [None]
  - HYPOTENSION [None]
  - INCORRECT ROUTE OF DRUG ADMINISTRATION [None]
  - NEUROLOGICAL DECOMPENSATION [None]
  - OXYGEN SATURATION DECREASED [None]
  - PUPIL FIXED [None]
